FAERS Safety Report 23507470 (Version 4)
Quarter: 2024Q1

REPORT INFORMATION
  Report Type: Other
  Country: US (occurrence: US)
  Receive Date: 20240209
  Receipt Date: 20240320
  Transmission Date: 20240410
  Serious: Yes (Other)
  Sender: FDA-Public Use
  Company Number: US-TRAVERE-2024TVT00103

PATIENT
  Age: 32 Year
  Sex: Female

DRUGS (14)
  1. FILSPARI [Suspect]
     Active Substance: SPARSENTAN
     Indication: IgA nephropathy
     Route: 048
     Dates: end: 20240118
  2. SODIUM BICARBONATE [Concomitant]
     Active Substance: SODIUM BICARBONATE
  3. AMOXICILLIN [Concomitant]
     Active Substance: AMOXICILLIN
  4. COLCHICINE [Concomitant]
     Active Substance: COLCHICINE
  5. PEPCID [Concomitant]
     Active Substance: FAMOTIDINE
  6. NORMODYNE [Concomitant]
     Active Substance: LABETALOL HYDROCHLORIDE
  7. PATIROMER [Concomitant]
     Active Substance: PATIROMER
  8. PROVENTIL HFA [Concomitant]
     Active Substance: ALBUTEROL SULFATE
  9. COZAAR [Concomitant]
     Active Substance: LOSARTAN POTASSIUM
  10. MAGNESIUM [Concomitant]
     Active Substance: MAGNESIUM
  11. SINGULAIR [Concomitant]
     Active Substance: MONTELUKAST SODIUM
  12. multivitamin tablet [Concomitant]
  13. OMEGA-3 ACIDS [Concomitant]
     Active Substance: OMEGA-3 FATTY ACIDS
  14. VITAMIN D [Concomitant]
     Active Substance: VITAMIN D NOS

REACTIONS (16)
  - Renal impairment [Unknown]
  - Acute kidney injury [Unknown]
  - Peripheral swelling [Unknown]
  - Arthralgia [Unknown]
  - Micturition urgency [Unknown]
  - Pollakiuria [Unknown]
  - Dyspnoea [Unknown]
  - Diarrhoea [Unknown]
  - Dyspepsia [Unknown]
  - Nausea [Unknown]
  - Abdominal pain [Unknown]
  - Back pain [Unknown]
  - Dizziness [Unknown]
  - Abdominal discomfort [Unknown]
  - Gastrooesophageal reflux disease [Unknown]
  - Contraindicated product administered [Unknown]

NARRATIVE: CASE EVENT DATE: 20240115
